FAERS Safety Report 4966109-9 (Version None)
Quarter: 2006Q2

REPORT INFORMATION
  Report Type: 
  Country: None (occurrence: None)
  Receive Date: 20060403
  Receipt Date: 20060322
  Transmission Date: 20061013
  Serious: Yes (Other)
  Sender: FDA-Public Use
  Company Number: S06-USA-00834-01

PATIENT
  Age: 36 Year
  Sex: Female

DRUGS (4)
  1. LEXAPRO [Suspect]
     Indication: PREMENSTRUAL SYNDROME
     Dosage: 2.5 MG QD PO
     Route: 048
     Dates: start: 20040101, end: 20051201
  2. LEXAPRO [Suspect]
     Indication: PREMENSTRUAL SYNDROME
     Dosage: 1 ML QD PO
     Route: 048
     Dates: start: 20051201, end: 20051201
  3. LEXAPRO [Suspect]
     Indication: PREMENSTRUAL SYNDROME
     Dosage: 0.5 ML QD PO
     Route: 048
     Dates: start: 20051201, end: 20060319
  4. LEVOXYL [Concomitant]

REACTIONS (4)
  - ABORTION SPONTANEOUS [None]
  - DRUG EXPOSURE DURING PREGNANCY [None]
  - PREGNANCY [None]
  - URTICARIA [None]
